FAERS Safety Report 23350497 (Version 1)
Quarter: 2023Q4

REPORT INFORMATION
  Report Type: Report from Study
  Country: US (occurrence: US)
  Receive Date: 20231229
  Receipt Date: 20231229
  Transmission Date: 20240109
  Serious: No
  Sender: FDA-Public Use
  Company Number: US-ALXN-A202210227

PATIENT
  Sex: Male

DRUGS (1)
  1. SOLIRIS [Suspect]
     Active Substance: ECULIZUMAB
     Indication: Myasthenia gravis
     Dosage: UNK
     Route: 042
     Dates: end: 20220810

REACTIONS (3)
  - Diplopia [Not Recovered/Not Resolved]
  - Somnolence [Unknown]
  - Insurance issue [Unknown]

NARRATIVE: CASE EVENT DATE: 20231213
